FAERS Safety Report 5194812-7 (Version None)
Quarter: 2006Q4

REPORT INFORMATION
  Report Type: 
  Country: None (occurrence: None)
  Receive Date: 20061227
  Receipt Date: 20061220
  Transmission Date: 20070319
  Serious: Yes (Other)
  Sender: FDA-Public Use
  Company Number: SP01064

PATIENT
  Age: 37 Year
  Sex: Female
  Weight: 58.9676 kg

DRUGS (2)
  1. XIFAXAN [Suspect]
     Indication: DIARRHOEA INFECTIOUS
     Dosage: 2 IN 1 D, ORAL; 2 TO 3 DAYS
     Route: 048
     Dates: start: 20061201
  2. XIFAXAN [Suspect]
     Indication: IRRITABLE BOWEL SYNDROME
     Dosage: 2 IN 1 D, ORAL; 2 TO 3 DAYS
     Route: 048
     Dates: start: 20061201

REACTIONS (2)
  - ABORTION SPONTANEOUS [None]
  - DRUG EXPOSURE DURING PREGNANCY [None]
